FAERS Safety Report 21044462 (Version 1)
Quarter: 2022Q3

REPORT INFORMATION
  Report Type: Spontaneous
  Country: GR (occurrence: GR)
  Receive Date: 20220705
  Receipt Date: 20220705
  Transmission Date: 20221027
  Serious: Yes (Life-Threatening, Hospitalization)
  Sender: FDA-Public Use
  Company Number: None

PATIENT
  Age: 32 Year
  Sex: Female
  Weight: 79 kg

DRUGS (1)
  1. COSENTYX [Suspect]
     Active Substance: SECUKINUMAB
     Indication: Psoriatic arthropathy
     Dosage: UNK (1 ADMINISTRATION EVERY WEEK FOR 1 MONTH THEN 1 ADMINISTRATION EVERY MONTH, ROUTE OF ADMINISTRAT
     Route: 065
     Dates: start: 202003, end: 202006

REACTIONS (8)
  - Crohn^s disease [Recovered/Resolved with Sequelae]
  - Diarrhoea [Unknown]
  - Aphthous ulcer [Unknown]
  - Weight decreased [Unknown]
  - Pyrexia [Unknown]
  - Vomiting [Unknown]
  - Rash [Unknown]
  - Colitis [Recovered/Resolved with Sequelae]

NARRATIVE: CASE EVENT DATE: 20200601
